FAERS Safety Report 6331619-9 (Version None)
Quarter: 2009Q3

REPORT INFORMATION
  Report Type: 
  Country: None (occurrence: None)
  Receive Date: 20090827
  Receipt Date: 20090820
  Transmission Date: 20100115
  Serious: Yes (Hospitalization)
  Sender: FDA-Public Use
  Company Number: PHHY2009MT35242

PATIENT
  Age: 65 Year
  Sex: Male

DRUGS (7)
  1. DIOVAN [Suspect]
     Indication: HYPERTENSION
     Dosage: 160 MG, BID
     Route: 048
     Dates: start: 20080801, end: 20090801
  2. SOTALOL HYDROCHLORIDE [Concomitant]
     Dosage: 80MG DAILY
  3. SOTALOL HYDROCHLORIDE [Concomitant]
     Dosage: UNK
  4. CARDURA [Concomitant]
     Dosage: UNK
     Dates: start: 20080801, end: 20090801
  5. BUMETANIDE [Concomitant]
     Dosage: 2 MG, UNK
     Dates: start: 20080801
  6. DIGOXIN [Concomitant]
     Dosage: UNK
  7. WARFARIN SODIUM [Concomitant]
     Dosage: UNK

REACTIONS (3)
  - BLOOD CREATININE INCREASED [None]
  - BRADYCARDIA [None]
  - HYPERKALAEMIA [None]
